FAERS Safety Report 7583122-6 (Version None)
Quarter: 2011Q2

REPORT INFORMATION
  Report Type: 
  Country: None (occurrence: None)
  Receive Date: 20110630
  Receipt Date: 20100905
  Transmission Date: 20111010
  Serious: No
  Sender: FDA-Public Use
  Company Number: US-ASTRAZENECA-2010SE41912

PATIENT

DRUGS (1)
  1. ZOLADEX [Suspect]
     Dosage: SYRINGE, 1X1 PIECE
     Route: 058

REACTIONS (1)
  - DEVICE EXPULSION [None]
